FAERS Safety Report 10476032 (Version 2)
Quarter: 2014Q4

REPORT INFORMATION
  Report Type: Spontaneous
  Country: AR (occurrence: AR)
  Receive Date: 20140925
  Receipt Date: 20141017
  Transmission Date: 20150528
  Serious: Yes (Other)
  Sender: FDA-Public Use
  Company Number: AR-PFIZER INC-2014262494

PATIENT
  Age: 8 Year
  Sex: Male

DRUGS (1)
  1. GENOTROPIN [Suspect]
     Active Substance: SOMATROPIN
     Indication: BLOOD GROWTH HORMONE DECREASED
     Dosage: 0.6 TO 1 MG, 6 TIMES A WEEK
     Dates: start: 20110616

REACTIONS (5)
  - Hypoacusis [Not Recovered/Not Resolved]
  - Tonsillar disorder [Recovering/Resolving]
  - Adenoidal disorder [Recovering/Resolving]
  - Oral disorder [Recovering/Resolving]
  - Ear disorder [Recovering/Resolving]

NARRATIVE: CASE EVENT DATE: 2014
